FAERS Safety Report 8286024-5 (Version None)
Quarter: 2012Q2

REPORT INFORMATION
  Report Type: 
  Country: None (occurrence: None)
  Receive Date: 20120416
  Receipt Date: 20120406
  Transmission Date: 20120825
  Serious: Yes (Hospitalization, Other)
  Sender: FDA-Public Use
  Company Number: US-BIOGENIDEC-168578

PATIENT
  Age: 46 Year
  Sex: Female

DRUGS (2)
  1. AVONEX [Suspect]
     Route: 030
     Dates: start: 20010701
  2. AVONEX [Suspect]
     Indication: MULTIPLE SCLEROSIS
     Route: 030
     Dates: start: 19970101, end: 20010201

REACTIONS (5)
  - MALIGNANT MELANOMA STAGE I [None]
  - NASOPHARYNGITIS [None]
  - BREAST CANCER STAGE II [None]
  - BREAST CELLULITIS [None]
  - INFECTION [None]
